FAERS Safety Report 9124570 (Version 1)
Quarter: 2013Q1

REPORT INFORMATION
  Report Type: Spontaneous
  Country: CA (occurrence: CA)
  Receive Date: 20130227
  Receipt Date: 20130227
  Transmission Date: 20140127
  Serious: Yes (Life-Threatening, Hospitalization)
  Sender: FDA-Public Use
  Company Number: CA-BRISTOL-MYERS SQUIBB COMPANY-17409384

PATIENT
  Age: 34 Year
  Sex: Female
  Weight: 108.84 kg

DRUGS (5)
  1. ESTRACE [Suspect]
     Route: 048
  2. CHORIONIC GONADOTROPIN [Suspect]
     Route: 030
  3. GONAL-F [Suspect]
     Route: 030
  4. MENOPUR [Suspect]
     Route: 058
  5. CELEBREX [Concomitant]

REACTIONS (3)
  - Pulmonary mass [Not Recovered/Not Resolved]
  - Mass [Not Recovered/Not Resolved]
  - Dyspnoea [Not Recovered/Not Resolved]
